FAERS Safety Report 6454335-1 (Version None)
Quarter: 2009Q4

REPORT INFORMATION
  Report Type: 
  Country: None (occurrence: None)
  Receive Date: 20091124
  Receipt Date: 20091119
  Transmission Date: 20100525
  Serious: Yes (Life-Threatening, Hospitalization)
  Sender: FDA-Public Use
  Company Number: US-EISAI INC.-M7002-00417-CLI-US

PATIENT
  Sex: Female
  Weight: 61 kg

DRUGS (9)
  1. ONTAK [Suspect]
     Indication: PERIPHERAL T-CELL LYMPHOMA UNSPECIFIED
     Route: 042
     Dates: end: 20070523
  2. CYCLOPHOSPHAMIDE [Concomitant]
     Route: 041
     Dates: start: 20070209, end: 20070524
  3. DOXORUBICIN HCL [Concomitant]
     Route: 041
     Dates: start: 20070209, end: 20070524
  4. VINCRISTINE [Concomitant]
     Route: 041
     Dates: start: 20070209, end: 20070524
  5. PREDNISONE [Concomitant]
     Route: 048
     Dates: start: 20070209, end: 20070524
  6. NEULASTA [Concomitant]
     Dates: start: 20070210
  7. LORAZEPAM [Concomitant]
  8. OXYCODONE HCL [Concomitant]
  9. VALACYCLOVIR HYDROCHLORIDE [Concomitant]

REACTIONS (1)
  - INFECTION [None]
